FAERS Safety Report 10955713 (Version 1)
Quarter: 2015Q1

REPORT INFORMATION
  Report Type: Spontaneous
  Country: US (occurrence: None)
  Receive Date: 20150325
  Receipt Date: 20150325
  Transmission Date: 20150721
  Serious: Yes (Hospitalization)
  Sender: FDA-Public Use
  Company Number: None

PATIENT
  Age: 52 Year
  Sex: Female
  Weight: 60.7 kg

DRUGS (1)
  1. CRIZOTINIB (PF-02341066) [Suspect]
     Active Substance: CRIZOTINIB
     Dates: end: 20150316

REACTIONS (4)
  - Nausea [None]
  - Alanine aminotransferase increased [None]
  - Aspartate aminotransferase increased [None]
  - Abdominal discomfort [None]

NARRATIVE: CASE EVENT DATE: 20150304
